FAERS Safety Report 9219472 (Version 2)
Quarter: 2013Q2

REPORT INFORMATION
  Report Type: Spontaneous
  Country: US (occurrence: None)
  Receive Date: 20130405
  Receipt Date: 20130425
  Transmission Date: 20140414
  Serious: Yes (Hospitalization)
  Sender: FDA-Public Use
  Company Number: US-DEXPHARM-20130144

PATIENT
  Sex: Female

DRUGS (2)
  1. OMEPRAZOLE [Suspect]
     Dosage: 20MG ONCE A DAY, ORAL
     Route: 048
     Dates: start: 201303, end: 201303
  2. SYNTHROID [Concomitant]

REACTIONS (1)
  - Anaphylactic shock [None]
